FAERS Safety Report 11637456 (Version 3)
Quarter: 2015Q4

REPORT INFORMATION
  Report Type: Spontaneous
  Country: US (occurrence: US)
  Receive Date: 20151016
  Receipt Date: 20151202
  Transmission Date: 20160304
  Serious: No
  Sender: FDA-Public Use
  Company Number: US-PFIZER INC-2015347392

PATIENT
  Age: 73 Year
  Sex: Female
  Weight: 88.44 kg

DRUGS (1)
  1. CELECOXIB. [Suspect]
     Active Substance: CELECOXIB
     Indication: OSTEOARTHRITIS
     Dosage: 200 MG, 1X/DAY
     Dates: start: 20151002

REACTIONS (14)
  - Insomnia [Unknown]
  - Joint range of motion decreased [Unknown]
  - Tinnitus [Recovering/Resolving]
  - Hot flush [Unknown]
  - Hyperhidrosis [Recovering/Resolving]
  - Hypertension [Recovering/Resolving]
  - Blood cholesterol increased [Unknown]
  - Weight increased [Unknown]
  - Feeling abnormal [Recovering/Resolving]
  - Headache [Recovering/Resolving]
  - Pain [Unknown]
  - Mobility decreased [Unknown]
  - Malaise [Unknown]
  - Influenza like illness [Unknown]

NARRATIVE: CASE EVENT DATE: 20151003
